FAERS Safety Report 5318475-2 (Version None)
Quarter: 2007Q2

REPORT INFORMATION
  Report Type: 
  Country: None (occurrence: None)
  Receive Date: 20070501
  Receipt Date: 20070419
  Transmission Date: 20071010
  Serious: Yes (Other)
  Sender: FDA-Public Use
  Company Number: GXKR2007GB03596

PATIENT
  Age: 52 Year
  Sex: Female
  Weight: 39 kg

DRUGS (8)
  1. MIRTAZIPINE (NGX) (MIRTAZAPINE) UNKNOWN [Suspect]
     Indication: DEPRESSION
     Dosage: SEE IMAGE
     Route: 048
     Dates: start: 20070307, end: 20070314
  2. MIRTAZIPINE (NGX) (MIRTAZAPINE) UNKNOWN [Suspect]
     Indication: DEPRESSION
     Dosage: SEE IMAGE
     Route: 048
     Dates: start: 20070314, end: 20070328
  3. CITALOPRAM HYDROBROMIDE [Concomitant]
  4. DIAZEPAM [Concomitant]
  5. MULTIVITAMIN PEREPARATIONS WITH OR W/O MINERAL (MULTIVITAMIN PREP WIEH [Concomitant]
  6. ACETAMINOPHEN [Concomitant]
  7. TEMAZEPAM [Concomitant]
  8. THIAMINE (THIAMINE) [Concomitant]

REACTIONS (3)
  - ANXIETY [None]
  - PSYCHOMOTOR HYPERACTIVITY [None]
  - RASH [None]
